FAERS Safety Report 8525057-8 (Version None)
Quarter: 2012Q3

REPORT INFORMATION
  Report Type: 
  Country: None (occurrence: None)
  Receive Date: 20120720
  Receipt Date: 20120713
  Transmission Date: 20120928
  Serious: Yes (Other)
  Sender: FDA-Public Use
  Company Number: CA-ASTRAZENECA-2012SE48196

PATIENT
  Age: 65 Year
  Sex: Male
  Weight: 77.1 kg

DRUGS (5)
  1. TIAZAC [Concomitant]
     Indication: HYPERTENSION
     Route: 048
     Dates: start: 20100101
  2. ROSUVASTATIN [Suspect]
     Route: 048
     Dates: start: 20120711
  3. CRESTOR [Suspect]
     Route: 048
     Dates: end: 20120629
  4. VALSARTAN HCT ^SANDOZ^ [Concomitant]
     Indication: HYPERTENSION
     Dosage: 160/25 MG 8 AM
     Route: 048
     Dates: start: 20080101
  5. ROSUVASTATIN [Suspect]
     Route: 048
     Dates: start: 20120629, end: 20120701

REACTIONS (2)
  - DIZZINESS [None]
  - VERTIGO [None]
